FAERS Safety Report 10586960 (Version 9)
Quarter: 2020Q1

REPORT INFORMATION
  Report Type: Report from Study
  Country: FR (occurrence: FR)
  Receive Date: 20141117
  Receipt Date: 20200210
  Transmission Date: 20200409
  Serious: Yes (Death, Life-Threatening, Hospitalization)
  Sender: FDA-Public Use
  Company Number: PHHY2014FR144565

PATIENT
  Age: 65 Year
  Sex: Female
  Weight: 64.85 kg

DRUGS (13)
  1. GALVUS [Concomitant]
     Active Substance: VILDAGLIPTIN
     Indication: DIABETES MELLITUS
     Dosage: 50 MG, QD
     Route: 048
     Dates: start: 20140711
  2. SYMBICORT [Concomitant]
     Active Substance: BUDESONIDE\FORMOTEROL FUMARATE DIHYDRATE
     Indication: CHRONIC OBSTRUCTIVE PULMONARY DISEASE
     Dosage: 0.2 MG, BID
     Route: 058
     Dates: start: 20140606, end: 20141103
  3. SINGULAIR [Concomitant]
     Active Substance: MONTELUKAST SODIUM
     Indication: CHRONIC OBSTRUCTIVE PULMONARY DISEASE
     Dosage: 10 MG, QD
     Route: 048
     Dates: start: 20140606, end: 20141103
  4. IXPRIM [Concomitant]
     Active Substance: ACETAMINOPHEN\TRAMADOL HYDROCHLORIDE
     Indication: PAIN
     Dosage: 37.5 MG, BID
     Route: 048
     Dates: start: 20141001
  5. SIGNIFOR [Suspect]
     Active Substance: PASIREOTIDE DIASPARTATE
     Indication: PITUITARY-DEPENDENT CUSHING^S SYNDROME
     Dosage: 0.9 MG, BID
     Route: 058
     Dates: start: 20140707, end: 20141027
  6. LANTUS [Concomitant]
     Active Substance: INSULIN GLARGINE
     Indication: DIABETES MELLITUS
     Dosage: 20 IU, QD
     Route: 058
     Dates: start: 20140710, end: 20141103
  7. HUMALOG [Concomitant]
     Active Substance: INSULIN LISPRO
     Indication: DIABETES MELLITUS
     Dosage: 60 IU, BID
     Route: 058
     Dates: start: 20140710, end: 20141103
  8. ALDACTONE [Concomitant]
     Active Substance: SPIRONOLACTONE
     Indication: HYPERTENSION
     Dosage: 25 MG, BID
     Route: 048
     Dates: start: 20140606
  9. PROZAC [Concomitant]
     Active Substance: FLUOXETINE HYDROCHLORIDE
     Indication: DEPRESSION
     Dosage: 20 MG, QD
     Route: 048
     Dates: start: 20140606
  10. SPASFON [Concomitant]
     Indication: PAIN
     Dosage: 80 MG, BID
     Route: 048
     Dates: start: 20141020
  11. LASILIX [Concomitant]
     Active Substance: FUROSEMIDE
     Indication: HYPERTENSION
     Dosage: 40 MG, QD
     Route: 048
     Dates: start: 20140624
  12. AMLOR [Concomitant]
     Active Substance: AMLODIPINE BESYLATE
     Indication: HYPERTENSION
     Dosage: 5 MG, QD
     Route: 048
     Dates: start: 20141001
  13. LEVOTHYROX [Concomitant]
     Active Substance: LEVOTHYROXINE
     Indication: HYPOTHYROIDISM
     Dosage: 15 ML, QD
     Route: 048
     Dates: start: 20140606

REACTIONS (10)
  - Coronary artery stenosis [Recovering/Resolving]
  - General physical health deterioration [Fatal]
  - Pneumocystis jirovecii pneumonia [Fatal]
  - Chronic obstructive pulmonary disease [Fatal]
  - Coma [Fatal]
  - Back pain [Unknown]
  - Oedema peripheral [Unknown]
  - Drug ineffective [Recovered/Resolved]
  - Respiratory distress [Fatal]
  - Wound [Unknown]

NARRATIVE: CASE EVENT DATE: 2014
